FAERS Safety Report 12808263 (Version 1)
Quarter: 2016Q4

REPORT INFORMATION
  Report Type: Report from Study
  Country: US (occurrence: US)
  Receive Date: 20161004
  Receipt Date: 20161004
  Transmission Date: 20170207
  Serious: Yes (Hospitalization)
  Sender: FDA-Public Use
  Company Number: US-GILEAD-2016-0232906

PATIENT
  Age: 61 Year
  Sex: Female

DRUGS (1)
  1. LEDIPASVIR/SOFOSBUVIR [Suspect]
     Active Substance: LEDIPASVIR\SOFOSBUVIR
     Indication: CHRONIC HEPATITIS C
     Dosage: 1 DF, QD
     Route: 048
     Dates: start: 20160713

REACTIONS (9)
  - Vomiting [Not Recovered/Not Resolved]
  - Weight decreased [Unknown]
  - Obstruction [Unknown]
  - Retching [Not Recovered/Not Resolved]
  - Abdominal discomfort [Unknown]
  - Insomnia [Unknown]
  - Dizziness [Unknown]
  - Constipation [Unknown]
  - Headache [Recovered/Resolved]

NARRATIVE: CASE EVENT DATE: 2016
